FAERS Safety Report 10666447 (Version 1)
Quarter: 2014Q4

REPORT INFORMATION
  Report Type: Spontaneous
  Country: US (occurrence: US)
  Receive Date: 20141221
  Receipt Date: 20141221
  Transmission Date: 20150529
  Serious: Yes (Other)
  Sender: FDA-Public Use
  Company Number: US-GLAXOSMITHKLINE-US2014GSK038801

PATIENT
  Age: 61 Year
  Sex: Female

DRUGS (1)
  1. ADOAIR INHALATIONAL POWDER [Suspect]
     Active Substance: FLUTICASONE PROPIONATE\SALMETEROL XINAFOATE
     Indication: ASTHMA
     Dosage: 2 PUFF(S), BID
     Route: 055

REACTIONS (7)
  - Fatigue [Recovered/Resolved]
  - Ecchymosis [Unknown]
  - Adrenal suppression [Recovered/Resolved]
  - Dyspnoea [Recovered/Resolved]
  - Cushingoid [Recovered/Resolved]
  - Asthenia [Recovered/Resolved]
  - Blood sodium increased [Recovered/Resolved]
